FAERS Safety Report 9836595 (Version 1)
Quarter: 2014Q1

REPORT INFORMATION
  Report Type: Spontaneous
  Country: GB (occurrence: GB)
  Receive Date: 20140123
  Receipt Date: 20140123
  Transmission Date: 20141002
  Serious: Yes (Other)
  Sender: FDA-Public Use
  Company Number: GB-JNJFOC-20140107678

PATIENT
  Sex: Female

DRUGS (2)
  1. DOXORUBICIN HYDROCHLORIDE [Suspect]
     Indication: OVARIAN CANCER
     Route: 042
  2. VINTAFOLIDE [Suspect]
     Indication: OVARIAN CANCER
     Route: 065

REACTIONS (3)
  - Leukopenia [Unknown]
  - Peripheral sensory neuropathy [Unknown]
  - Adverse event [Unknown]
